FAERS Safety Report 10956933 (Version 1)
Quarter: 2015Q1

REPORT INFORMATION
  Report Type: Report from Study
  Country: ES (occurrence: None)
  Receive Date: 20150324
  Receipt Date: 20150324
  Transmission Date: 20150721
  Serious: Yes (Hospitalization, Other)
  Sender: FDA-Public Use
  Company Number: ES2015GSK036483

PATIENT
  Sex: Male

DRUGS (9)
  1. RALTEGRAVIR [Concomitant]
     Active Substance: RALTEGRAVIR
  2. MARAVIROC (MARAVIROC) UNKNOWN [Suspect]
     Active Substance: MARAVIROC
     Indication: HIV INFECTION
     Dates: start: 20071029
  3. TRUVADA [Concomitant]
     Active Substance: EMTRICITABINE\TENOFOVIR DISOPROXIL FUMARATE
  4. ENANTYUM (DEXKETOPROFEN TROMETAMOL) [Concomitant]
  5. LORAZEPAM. [Concomitant]
     Active Substance: LORAZEPAM
  6. CLEXANE (ENOXAPARIN) [Concomitant]
  7. PIPERACILLIN AND TAZOBACTAM [Concomitant]
     Active Substance: PIPERACILLIN SODIUM\TAZOBACTAM SODIUM
  8. PARACETAMOL [Concomitant]
     Active Substance: ACETAMINOPHEN
  9. OMEPRAZOLE. [Concomitant]
     Active Substance: OMEPRAZOLE

REACTIONS (3)
  - Metastatic malignant melanoma [None]
  - Pseudomonas test positive [None]
  - Cellulitis [None]

NARRATIVE: CASE EVENT DATE: 20120605
